FAERS Safety Report 17498009 (Version 3)
Quarter: 2020Q3

REPORT INFORMATION
  Report Type: Spontaneous
  Country: FI (occurrence: FI)
  Receive Date: 20200304
  Receipt Date: 20200713
  Transmission Date: 20201102
  Serious: Yes (Other)
  Sender: FDA-Public Use
  Company Number: FI-FERRINGPH-2019FE09080

PATIENT
  Age: 32 Year
  Sex: Female
  Weight: 119 kg

DRUGS (2)
  1. PANADOL [Concomitant]
     Active Substance: ACETAMINOPHEN
     Dosage: 1 G, DAILY
     Dates: start: 20191210, end: 20191210
  2. PROPESS [Suspect]
     Active Substance: DINOPROSTONE
     Indication: LABOUR INDUCTION
     Dosage: 10 MG, ONCE/SINGLE
     Route: 067
     Dates: start: 20191210, end: 20191210

REACTIONS (3)
  - Therapeutic product effect incomplete [Unknown]
  - Infection [Unknown]
  - Arrested labour [Recovered/Resolved]

NARRATIVE: CASE EVENT DATE: 20191210
